FAERS Safety Report 9547120 (Version 1)
Quarter: 2013Q2

REPORT INFORMATION
  Report Type: Spontaneous
  Country: US (occurrence: None)
  Receive Date: 20130606
  Receipt Date: 20130606
  Transmission Date: 20140414
  Serious: No
  Sender: FDA-Public Use
  Company Number: 163-POMAL-13032268

PATIENT
  Age: 80 Year
  Sex: Male

DRUGS (9)
  1. POMALYST [Suspect]
     Indication: PLASMA CELL MYELOMA
     Dosage: 4 MG, 21 IN 21 D, PO
     Route: 048
     Dates: start: 20130225
  2. ADVIL(IBUPROFEN) [Concomitant]
  3. ASPIRIN(ACETYLSALICYLIC ACID) [Concomitant]
  4. BENADRYL [Concomitant]
  5. CALCIUM + D(OS-CAL) [Concomitant]
  6. DEXAMETHASONE(DEXAMETHASONE) [Concomitant]
  7. MORPHINE SULFATE (MORPHINE SULFATE) [Concomitant]
  8. NEULASTA(PEGFILGRASTIM) [Concomitant]
  9. NEURONTIN(GABAPENTIN) [Concomitant]

REACTIONS (1)
  - Rash [None]
